FAERS Safety Report 21981300 (Version 1)
Quarter: 2023Q1

REPORT INFORMATION
  Report Type: Spontaneous
  Country: US (occurrence: US)
  Receive Date: 20230211
  Receipt Date: 20230211
  Transmission Date: 20230418
  Serious: No
  Sender: FDA-Public Use
  Company Number: US-002147023-NVSC2023US029146

PATIENT
  Sex: Female

DRUGS (1)
  1. BUPROPION [Suspect]
     Active Substance: BUPROPION
     Indication: Product used for unknown indication
     Dosage: UNK (USING PRODUCT FOR 25 YEARS)
     Route: 065

REACTIONS (4)
  - Tongue disorder [Unknown]
  - Dry mouth [Unknown]
  - Middle insomnia [Unknown]
  - Drug ineffective [Unknown]
